FAERS Safety Report 6518250-7 (Version None)
Quarter: 2009Q4

REPORT INFORMATION
  Report Type: 
  Country: None (occurrence: None)
  Receive Date: 20091223
  Receipt Date: 20091223
  Transmission Date: 20100525
  Serious: Yes (Other)
  Sender: FDA-Public Use
  Company Number: None

PATIENT

DRUGS (2)
  1. LIPITOR [Suspect]
     Indication: BLOOD CHOLESTEROL
     Dosage: 1 PER DAY EVENING
  2. VYTORIN [Suspect]
     Indication: BLOOD CHOLESTEROL
     Dosage: 1 PER DAY EVENING

REACTIONS (3)
  - BALANCE DISORDER [None]
  - DIZZINESS [None]
  - DRUG LEVEL INCREASED [None]
